FAERS Safety Report 5973454-7 (Version None)
Quarter: 2008Q4

REPORT INFORMATION
  Report Type: 
  Country: None (occurrence: None)
  Receive Date: 20081201
  Receipt Date: 20080115
  Transmission Date: 20090506
  Serious: No
  Sender: FDA-Public Use
  Company Number: US-AMGEN-KDL260905

PATIENT
  Sex: Male

DRUGS (3)
  1. ENBREL [Suspect]
     Indication: RHEUMATOID ARTHRITIS
     Route: 058
     Dates: start: 20071020
  2. ENBREL [Suspect]
     Indication: SPONDYLOARTHROPATHY
  3. METHOTREXATE [Concomitant]
     Route: 048
     Dates: start: 20070201

REACTIONS (2)
  - BRONCHITIS [None]
  - RHEUMATOID ARTHRITIS [None]
